FAERS Safety Report 7780464-6 (Version None)
Quarter: 2011Q3

REPORT INFORMATION
  Report Type: 
  Country: None (occurrence: None)
  Receive Date: 20110923
  Receipt Date: 20110912
  Transmission Date: 20111222
  Serious: Yes (Hospitalization, Other)
  Sender: FDA-Public Use
  Company Number: TPA2011A03335

PATIENT
  Age: 71 Year
  Sex: Female
  Weight: 58.9676 kg

DRUGS (5)
  1. SPIRIVA [Concomitant]
  2. VYTORIN [Concomitant]
  3. METFORMIN HCL [Concomitant]
  4. ACTOS [Suspect]
     Indication: TYPE 2 DIABETES MELLITUS
     Dosage: 15 MG, 1 IN 1 D, PER ORAL
     Route: 048
     Dates: start: 20080101, end: 20110101
  5. AMARYL [Concomitant]

REACTIONS (4)
  - AORTIC ANEURYSM [None]
  - UMBILICAL HERNIA [None]
  - BLADDER CANCER [None]
  - NEPHROLITHIASIS [None]
